FAERS Safety Report 5097537-1 (Version None)
Quarter: 2006Q3

REPORT INFORMATION
  Report Type: 
  Country: None (occurrence: None)
  Receive Date: 20060901
  Receipt Date: 20060823
  Transmission Date: 20061208
  Serious: Yes (Life-Threatening)
  Sender: FDA-Public Use
  Company Number: 2006028437

PATIENT
  Age: 6 Year
  Sex: Male
  Weight: 24 kg

DRUGS (1)
  1. GENOTROPIN [Suspect]
     Indication: HYPOPITUITARISM
     Dosage: 0.6 MG (0.6 MG,DAILY), SUBCUTANEOUS
     Route: 058
     Dates: start: 20050301, end: 20060201

REACTIONS (5)
  - CARDIAC FAILURE [None]
  - CARDIOMYOPATHY [None]
  - DRUG TOXICITY [None]
  - INTRACARDIAC THROMBUS [None]
  - MYOCARDITIS [None]
